FAERS Safety Report 8995348 (Version 2)
Quarter: 2013Q1

REPORT INFORMATION
  Report Type: Spontaneous
  Country: FR (occurrence: FR)
  Receive Date: 20130102
  Receipt Date: 20130206
  Transmission Date: 20140127
  Serious: Yes (Hospitalization)
  Sender: FDA-Public Use
  Company Number: FR-ASTRAZENECA-2012SE95317

PATIENT
  Age: 21468 Day
  Sex: Female

DRUGS (15)
  1. INEXIUM [Suspect]
     Route: 048
     Dates: start: 20121004
  2. ORBENINE [Suspect]
     Route: 042
     Dates: start: 20121010, end: 20121024
  3. GADOVIST [Suspect]
     Route: 042
     Dates: start: 20121008, end: 20121008
  4. GENTAMYCINE [Suspect]
     Route: 042
     Dates: start: 20121010, end: 20121011
  5. VANCOMYCINE [Suspect]
     Dosage: 8 G (BOLUS) + 3 G
     Route: 042
     Dates: start: 20121009, end: 20121012
  6. VANCOMYCINE [Suspect]
     Dosage: 2.5 G (BOLUS) + 1250 MG
     Route: 042
     Dates: start: 20121004, end: 20121004
  7. LANTUS [Concomitant]
  8. NOVORAPID [Concomitant]
  9. BROMAZEPAM [Concomitant]
  10. PRAVASTATINE [Concomitant]
  11. TRIATEC [Concomitant]
  12. PARACETAMOL [Concomitant]
  13. LOVENOX [Concomitant]
     Route: 048
     Dates: start: 20121004, end: 20121016
  14. CALCIPARINE [Concomitant]
     Dosage: 0.2 BID
     Route: 048
     Dates: start: 20121016, end: 20121028
  15. KARDEGIC [Concomitant]

REACTIONS (2)
  - Renal tubular necrosis [Recovering/Resolving]
  - Renal failure [Recovering/Resolving]
